FAERS Safety Report 9399002 (Version 5)
Quarter: 2013Q4

REPORT INFORMATION
  Report Type: Spontaneous
  Country: JP (occurrence: JP)
  Receive Date: 20130714
  Receipt Date: 20131226
  Transmission Date: 20140711
  Serious: Yes (Hospitalization)
  Sender: FDA-Public Use
  Company Number: JP-009507513-1307JPN005804

PATIENT
  Age: 56 Year
  Sex: Male
  Weight: 75.7 kg

DRUGS (12)
  1. GASTER D [Suspect]
     Dosage: 20 MG, QW
     Route: 048
     Dates: start: 20130117
  2. GASTER D [Suspect]
     Dosage: 20 MG, WEEKLY
     Route: 048
     Dates: start: 20120913
  3. CERTOLIZUMAB PEGOL [Suspect]
     Indication: RHEUMATOID ARTHRITIS
     Dosage: 400 MG, Q2W
     Route: 058
     Dates: start: 20120509, end: 20121023
  4. CERTOLIZUMAB PEGOL [Suspect]
     Dosage: 200 MG, Q2W
     Route: 058
     Dates: start: 20121024, end: 20121121
  5. CERTOLIZUMAB PEGOL [Suspect]
     Dosage: 200 MG, Q2W
     Route: 058
     Dates: start: 20121219, end: 20130619
  6. CERTOLIZUMAB PEGOL [Suspect]
     Dosage: 200 MG, Q2W
     Route: 058
     Dates: start: 20130703
  7. FOLIAMIN [Suspect]
     Indication: PROPHYLAXIS
     Dosage: 1.5 MG, UNK/D
     Route: 048
     Dates: start: 20121204
  8. LAC-B [Suspect]
     Indication: GASTROINTESTINAL MOTILITY DISORDER
     Dosage: 1 G, PRN
     Route: 048
     Dates: start: 20120621
  9. LOXONIN [Suspect]
     Indication: RHEUMATOID ARTHRITIS
     Dosage: UNK
     Route: 062
     Dates: start: 20120201
  10. METHOTREXATE [Concomitant]
     Indication: RHEUMATOID ARTHRITIS
     Dosage: UNK
     Route: 048
     Dates: start: 20120510, end: 20121128
  11. PATANOL [Concomitant]
     Dosage: UNK
     Route: 047
     Dates: start: 2012
  12. CRAVIT [Concomitant]
     Indication: INFECTION PROPHYLAXIS
     Dosage: UNK
     Route: 047
     Dates: start: 20130624, end: 20130627

REACTIONS (3)
  - Cataract [Recovered/Resolved]
  - Macular fibrosis [Recovered/Resolved]
  - Intentional drug misuse [Unknown]
